FAERS Safety Report 11180556 (Version 1)
Quarter: 2015Q2

REPORT INFORMATION
  Report Type: Spontaneous
  Country: US (occurrence: US)
  Receive Date: 20150611
  Receipt Date: 20150611
  Transmission Date: 20150821
  Serious: No
  Sender: FDA-Public Use
  Company Number: US-PFIZER INC-2015193604

PATIENT
  Age: 86 Year
  Sex: Male
  Weight: 52 kg

DRUGS (3)
  1. ROBITUSSIN COUGH AND CHEST CONGESTION SUGAR FREE DM [Interacting]
     Active Substance: DEXTROMETHORPHAN HYDROBROMIDE\GUAIFENESIN
     Indication: RESPIRATORY TRACT CONGESTION
     Dosage: UNK
  2. LEVOTHYROXINE SODIUM. [Suspect]
     Active Substance: LEVOTHYROXINE SODIUM
     Indication: THYROID DISORDER
     Dosage: 25 MCG, 1X/DAY
  3. LEVOTHYROXINE SODIUM. [Interacting]
     Active Substance: LEVOTHYROXINE SODIUM
     Dosage: 50 MCG, 1X/DAY
     Dates: start: 20150604

REACTIONS (2)
  - Drug interaction [Unknown]
  - Yellow skin [Recovering/Resolving]

NARRATIVE: CASE EVENT DATE: 20150605
